FAERS Safety Report 7753381-5 (Version None)
Quarter: 2011Q3

REPORT INFORMATION
  Report Type: 
  Country: None (occurrence: None)
  Receive Date: 20110913
  Receipt Date: 20110831
  Transmission Date: 20111222
  Serious: Yes (Other)
  Sender: FDA-Public Use
  Company Number: 7080403

PATIENT
  Age: 52 Year
  Sex: Female

DRUGS (10)
  1. LEVOTHYROXINE SODIUM [Suspect]
     Indication: THYROIDECTOMY
     Dosage: 12.5UG-75UG (1 IN 1 D)  125 MCG (125 MCG, 1 IN 1 D)  75 MCG (75 MCG, 1 IN 1 D)  100 MCG (100MCG, 1 I
     Route: 048
     Dates: start: 20110501, end: 20110823
  2. LEVOTHYROXINE SODIUM [Suspect]
     Indication: THYROID CANCER
     Dosage: 12.5UG-75UG (1 IN 1 D)  125 MCG (125 MCG, 1 IN 1 D)  75 MCG (75 MCG, 1 IN 1 D)  100 MCG (100MCG, 1 I
     Route: 048
     Dates: start: 20110501, end: 20110823
  3. LEVOTHYROXINE SODIUM [Suspect]
     Indication: THYROIDECTOMY
     Dosage: 12.5UG-75UG (1 IN 1 D)  125 MCG (125 MCG, 1 IN 1 D)  75 MCG (75 MCG, 1 IN 1 D)  100 MCG (100MCG, 1 I
     Route: 048
     Dates: start: 20110101, end: 20110501
  4. LEVOTHYROXINE SODIUM [Suspect]
     Indication: THYROID CANCER
     Dosage: 12.5UG-75UG (1 IN 1 D)  125 MCG (125 MCG, 1 IN 1 D)  75 MCG (75 MCG, 1 IN 1 D)  100 MCG (100MCG, 1 I
     Route: 048
     Dates: start: 20110101, end: 20110501
  5. LEVOTHYROXINE SODIUM [Suspect]
     Indication: THYROIDECTOMY
     Dosage: 12.5UG-75UG (1 IN 1 D)  125 MCG (125 MCG, 1 IN 1 D)  75 MCG (75 MCG, 1 IN 1 D)  100 MCG (100MCG, 1 I
     Route: 048
     Dates: start: 20101101
  6. LEVOTHYROXINE SODIUM [Suspect]
     Indication: THYROID CANCER
     Dosage: 12.5UG-75UG (1 IN 1 D)  125 MCG (125 MCG, 1 IN 1 D)  75 MCG (75 MCG, 1 IN 1 D)  100 MCG (100MCG, 1 I
     Route: 048
     Dates: start: 20101101
  7. LEVOTHYROXINE SODIUM [Suspect]
     Indication: THYROIDECTOMY
     Dosage: 12.5UG-75UG (1 IN 1 D)  125 MCG (125 MCG, 1 IN 1 D)  75 MCG (75 MCG, 1 IN 1 D)  100 MCG (100MCG, 1 I
     Route: 048
     Dates: start: 20110828
  8. LEVOTHYROXINE SODIUM [Suspect]
     Indication: THYROID CANCER
     Dosage: 12.5UG-75UG (1 IN 1 D)  125 MCG (125 MCG, 1 IN 1 D)  75 MCG (75 MCG, 1 IN 1 D)  100 MCG (100MCG, 1 I
     Route: 048
     Dates: start: 20110828
  9. LEVOTHYROXINE SODIUM [Suspect]
     Indication: THYROIDECTOMY
     Dosage: 12.5UG-75UG (1 IN 1 D)  125 MCG (125 MCG, 1 IN 1 D)  75 MCG (75 MCG, 1 IN 1 D)  100 MCG (100MCG, 1 I
     Route: 048
     Dates: start: 20101101, end: 20110101
  10. LEVOTHYROXINE SODIUM [Suspect]
     Indication: THYROID CANCER
     Dosage: 12.5UG-75UG (1 IN 1 D)  125 MCG (125 MCG, 1 IN 1 D)  75 MCG (75 MCG, 1 IN 1 D)  100 MCG (100MCG, 1 I
     Route: 048
     Dates: start: 20101101, end: 20110101

REACTIONS (1)
  - HYPERTHYROIDISM [None]
